FAERS Safety Report 9298509 (Version 1)
Quarter: 2013Q2

REPORT INFORMATION
  Report Type: Spontaneous
  Country: US (occurrence: None)
  Receive Date: 20130515
  Receipt Date: 20130515
  Transmission Date: 20140414
  Serious: Yes (Death, Hospitalization)
  Sender: FDA-Public Use
  Company Number: 2013-167

PATIENT
  Age: 65 Year
  Sex: Male

DRUGS (26)
  1. FAZACLO (CLOZAPINE, USP) ODT (ORAL DISINTEGRATING TABLET) [Suspect]
     Indication: SCHIZOPHRENIA
     Route: 048
     Dates: start: 20110114, end: 20130426
  2. LOPERAMIDE HCL (LOPERAMIDE HYDROCHLORIDE) [Concomitant]
  3. PROMETHAZINE (PROMETHAZINE HYDROCHLORIDE) [Concomitant]
  4. OMEPRAZOLE (OMEPRAZOLE) [Concomitant]
  5. NUEDEXTA (DEXTROMETHORPHAN HYDROBROMIDE, QUINIDINE SULFATE) [Concomitant]
  6. FOLIC ACID (FOLIC ACID) [Concomitant]
  7. LEXAPRO (ESCITALOPRAM OXALATE) [Concomitant]
  8. LOSARTAN (LOSARTAN POTASSIUM) [Concomitant]
  9. LAMOTRIGINE (LAMOTRIGINE) [Concomitant]
  10. PINDOLOL (PINDOLOL) [Concomitant]
  11. VITAMIN B-12 (CYANOCOBALAMIN) [Concomitant]
  12. VITAMIN C [Concomitant]
  13. DOCUSATE CALCIUM (DOCUSATE CALCIUM) [Concomitant]
  14. ABILIFY (ARIPIPRAZOLE) [Concomitant]
  15. CALMOSEPTINE (CALAMINE) [Concomitant]
  16. THERA-M (FOLIC ACID, MINERALS NOS, VITAMINS NOS) [Concomitant]
  17. POLYETHEYLENE GLYCOL (MACROGOL) [Concomitant]
  18. ASPIRIN (ACETYLSALICYLIC ACID) [Concomitant]
  19. ACETYLCYSTEINE (ACETYLCYSTEINE SODIUM) [Concomitant]
  20. STROMECTOL (IVERMECTIN) [Concomitant]
  21. COLLAGENASE SANTYL [Concomitant]
  22. NAMENDA (MEMANTINE HYDROCHLORIDE) [Concomitant]
  23. ALBUTEROL (SALBUTAMOL SULFATE) [Concomitant]
  24. CIPROFLOXACIN (CIPROFLOXACIN LACTATE) [Concomitant]
  25. AMOXICILLIN (AMOXICILLIN TRIHYDRATE) [Concomitant]
  26. SILVER SULFADIAZINE (SULFADIAZINE SILVER) [Concomitant]

REACTIONS (2)
  - Nausea [None]
  - Diarrhoea [None]
